FAERS Safety Report 7427833-1 (Version None)
Quarter: 2011Q2

REPORT INFORMATION
  Report Type: 
  Country: None (occurrence: None)
  Receive Date: 20110415
  Receipt Date: 20110415
  Transmission Date: 20111010
  Serious: Yes (Other)
  Sender: FDA-Public Use
  Company Number: None

PATIENT
  Age: 13 Year
  Sex: Male
  Weight: 40.8237 kg

DRUGS (5)
  1. ZONEGRAN [Concomitant]
  2. TRANXENE [Concomitant]
  3. FELBATOL [Concomitant]
  4. KEPPRA [Suspect]
     Indication: CONVULSION
     Dosage: 10ML TID ORALLY
     Route: 048
     Dates: start: 20090101
  5. KEPPRA [Suspect]
     Indication: LENNOX-GASTAUT SYNDROME
     Dosage: 10ML TID ORALLY
     Route: 048
     Dates: start: 20090101

REACTIONS (3)
  - THERAPEUTIC RESPONSE UNEXPECTED WITH DRUG SUBSTITUTION [None]
  - CONVULSION [None]
  - CONDITION AGGRAVATED [None]
